FAERS Safety Report 12364616 (Version 1)
Quarter: 2016Q2

REPORT INFORMATION
  Report Type: Spontaneous
  Country: US (occurrence: None)
  Receive Date: 20160512
  Receipt Date: 20160512
  Transmission Date: 20160815
  Serious: Yes (Hospitalization)
  Sender: FDA-Public Use
  Company Number: None

PATIENT
  Age: 67 Year
  Sex: Male
  Weight: 75.4 kg

DRUGS (1)
  1. INSULIN [Suspect]
     Active Substance: INSULIN NOS
     Indication: DIABETES MELLITUS
     Dosage: 15 UNITS AM SQ
     Route: 058
     Dates: start: 20110203, end: 20160326

REACTIONS (2)
  - Incorrect dose administered [None]
  - Hypoglycaemia [None]

NARRATIVE: CASE EVENT DATE: 20160326
